FAERS Safety Report 8083601-1 (Version None)
Quarter: 2012Q1

REPORT INFORMATION
  Report Type: 
  Country: None (occurrence: None)
  Receive Date: 20120127
  Receipt Date: 20110125
  Transmission Date: 20120608
  Serious: No
  Sender: FDA-Public Use
  Company Number: US-ABBOTT-11P-163-0701036-00

PATIENT
  Sex: Male

DRUGS (1)
  1. HUMIRA [Suspect]
     Indication: PSORIASIS
     Dosage: 2 PEN LOADING DOSE
     Route: 058
     Dates: start: 20110115, end: 20110115

REACTIONS (3)
  - VISION BLURRED [None]
  - EYE IRRITATION [None]
  - HEADACHE [None]
